FAERS Safety Report 14370748 (Version 9)
Quarter: 2023Q4

REPORT INFORMATION
  Report Type: Spontaneous
  Country: US (occurrence: US)
  Receive Date: 20180110
  Receipt Date: 20231018
  Transmission Date: 20240109
  Serious: Yes (Other)
  Sender: FDA-Public Use
  Company Number: US-PFIZER INC-2018007110

PATIENT
  Age: 65 Year
  Sex: Male
  Weight: 77.11 kg

DRUGS (2)
  1. BOSULIF [Suspect]
     Active Substance: BOSUTINIB MONOHYDRATE
     Indication: Chronic lymphocytic leukaemia
     Dosage: 100 MG, 1X/DAY
     Route: 048
     Dates: start: 20171011
  2. BOSULIF [Suspect]
     Active Substance: BOSUTINIB MONOHYDRATE
     Indication: Philadelphia positive chronic myeloid leukaemia

REACTIONS (5)
  - Hernia [Unknown]
  - Back pain [Unknown]
  - Hypertension [Unknown]
  - Visual impairment [Unknown]
  - Dysphonia [Unknown]
